FAERS Safety Report 21038691 (Version 1)
Quarter: 2022Q3

REPORT INFORMATION
  Report Type: Spontaneous
  Country: US (occurrence: US)
  Receive Date: 20220704
  Receipt Date: 20220704
  Transmission Date: 20221026
  Serious: Yes (Other)
  Sender: FDA-Public Use
  Company Number: US-009507513-2206USA008503

PATIENT
  Sex: Female

DRUGS (1)
  1. BRIDION [Suspect]
     Active Substance: SUGAMMADEX
     Dosage: 2MG/KG
     Route: 042

REACTIONS (2)
  - Cardio-respiratory arrest [Recovered/Resolved]
  - Blood pressure decreased [Recovered/Resolved]
